FAERS Safety Report 6203461-0 (Version None)
Quarter: 2009Q2

REPORT INFORMATION
  Report Type: 
  Country: None (occurrence: None)
  Receive Date: 20090527
  Receipt Date: 20090515
  Transmission Date: 20091009
  Serious: Yes (Hospitalization)
  Sender: FDA-Public Use
  Company Number: AU-ELI_LILLY_AND_COMPANY-AU200905003014

PATIENT
  Age: 71 Year
  Sex: Male

DRUGS (4)
  1. CYMBALTA [Suspect]
     Indication: DEPRESSION
     Dosage: 60 MG, DAILY (1/D)
     Route: 048
  2. DIURETICS [Concomitant]
  3. ACE INHIBITOR NOS [Concomitant]
  4. PLATELET AGGREGATION INHIBITORS [Concomitant]

REACTIONS (4)
  - FALL [None]
  - HYPONATRAEMIA [None]
  - SUBDURAL HAEMATOMA [None]
  - SUICIDAL BEHAVIOUR [None]
